FAERS Safety Report 9747640 (Version 1)
Quarter: 2013Q4

REPORT INFORMATION
  Report Type: Spontaneous
  Country: US (occurrence: None)
  Receive Date: 20131211
  Receipt Date: 20131211
  Transmission Date: 20140711
  Serious: Yes (Hospitalization)
  Sender: FDA-Public Use
  Company Number: None

PATIENT
  Sex: 0

DRUGS (1)
  1. OXYBUTYNIN CHLORIDE [Suspect]
     Indication: POLLAKIURIA
     Route: 048

REACTIONS (1)
  - Dizziness [None]
